FAERS Safety Report 7894964 (Version 2)
Quarter: 2012Q4

REPORT INFORMATION
  Report Type: Spontaneous
  Country: US (occurrence: None)
  Receive Date: 20110321
  Receipt Date: 20121114
  Transmission Date: 20130627
  Serious: Yes (Other)
  Sender: FDA-Public Use
  Company Number: 2011MA002409

PATIENT
  Sex: Female
  Weight: 63.5 kg

DRUGS (34)
  1. METOCLOPRAMIDE [Suspect]
     Indication: GERD
     Dates: start: 20040218, end: 20040318
  2. ACETAMINOPHEN W/CODEINE [Concomitant]
  3. ALINIA [Concomitant]
  4. ALPRAZOLAM [Concomitant]
  5. ARICEPT [Concomitant]
  6. AVELOX [Concomitant]
  7. BENZTROPINE MESYLATE [Concomitant]
  8. BEXTRA [Concomitant]
  9. CARBIDOPA/LEVODOPA [Concomitant]
  10. CARDIZEM CD [Concomitant]
  11. CHOLESTYRAMINE [Concomitant]
  12. CLARINEX [Concomitant]
  13. CYCLOBENZAPRINE [Concomitant]
  14. DEPAKOTE [Concomitant]
  15. EFFEXOR XR [Concomitant]
  16. ERY-TAB [Concomitant]
  17. ESTRADIOL [Concomitant]
  18. FLONASE [Concomitant]
  19. GFN 1000/DM 60 [Concomitant]
  20. HYDROCODONE W/ACETAMINOPHEN [Concomitant]
  21. LEVAQUIN [Concomitant]
  22. LIDOCAINE [Concomitant]
  23. MUPIROCIN [Concomitant]
  24. NEURONTIN [Concomitant]
  25. NEXIUM [Concomitant]
  26. NYSTATIN [Concomitant]
  27. PAROXETINE [Concomitant]
  28. PREMARIN [Concomitant]
  29. PROMETHAZINE [Concomitant]
  30. SULINDAC [Concomitant]
  31. TAZTIA XT [Concomitant]
  32. TRAMADOL [Concomitant]
  33. XANAX [Concomitant]
  34. ZOCOR [Concomitant]

REACTIONS (9)
  - Tardive dyskinesia [None]
  - Restless legs syndrome [None]
  - Extrapyramidal disorder [None]
  - Tremor [None]
  - Economic problem [None]
  - Parkinson^s disease [None]
  - Parkinsonism [None]
  - Emotional disorder [None]
  - Cerebral atrophy [None]
